FAERS Safety Report 11643739 (Version 1)
Quarter: 2015Q4

REPORT INFORMATION
  Report Type: Spontaneous
  Country: US (occurrence: None)
  Receive Date: 20151019
  Receipt Date: 20151019
  Transmission Date: 20160304
  Serious: Yes (Disabling)
  Sender: FDA-Public Use
  Company Number: None

PATIENT
  Age: 84 Year
  Sex: Female
  Weight: 70.31 kg

DRUGS (14)
  1. POT CHLOR ER [Concomitant]
  2. GLIMEPIRIDE. [Concomitant]
     Active Substance: GLIMEPIRIDE
  3. CHONDRAITINT [Concomitant]
  4. LORATADINE. [Concomitant]
     Active Substance: LORATADINE
  5. GARLIC. [Concomitant]
     Active Substance: GARLIC
  6. MSM [Concomitant]
     Active Substance: DIMETHYL SULFONE
  7. NATURE MADE FISH OIL 1200MG, 360MG OMEGA NATURE MADE NUITRITIONAL PRODUCT [Suspect]
     Active Substance: FISH OIL\OMEGA-3 FATTY ACIDS
     Indication: CARDIOVASCULAR EVENT PROPHYLAXIS
     Route: 048
     Dates: end: 20150824
  8. VITAMIN C [Concomitant]
     Active Substance: ASCORBIC ACID
  9. LOVASTATIN. [Concomitant]
     Active Substance: LOVASTATIN
  10. KRILL OIL [Concomitant]
     Active Substance: DIETARY SUPPLEMENT
  11. MAGNESIUM [Concomitant]
     Active Substance: MAGNESIUM
  12. VITAMIN D [Concomitant]
     Active Substance: CHOLECALCIFEROL
  13. GLUCOSAMINE [Concomitant]
     Active Substance: GLUCOSAMINE
  14. CENTRUM SILVER [Concomitant]
     Active Substance: MINERALS\VITAMINS

REACTIONS (11)
  - Flatulence [None]
  - Nausea [None]
  - Wheelchair user [None]
  - Vomiting [None]
  - Medication residue present [None]
  - Asthenia [None]
  - Activities of daily living impaired [None]
  - Product solubility abnormal [None]
  - Pain [None]
  - Malaise [None]
  - Decreased appetite [None]

NARRATIVE: CASE EVENT DATE: 20150816
